FAERS Safety Report 25844136 (Version 2)
Quarter: 2025Q3

REPORT INFORMATION
  Report Type: Spontaneous
  Country: JP (occurrence: JP)
  Receive Date: 20250925
  Receipt Date: 20250926
  Transmission Date: 20251020
  Serious: No
  Sender: TAKEDA
  Company Number: JP-TAKEDA-2025TJP009572

PATIENT
  Age: 7 Decade
  Sex: Female

DRUGS (1)
  1. TRINTELLIX [Suspect]
     Active Substance: VORTIOXETINE HYDROBROMIDE
     Indication: Depression

REACTIONS (2)
  - Overdose [Recovered/Resolved]
  - No adverse event [Unknown]
